FAERS Safety Report 11236487 (Version 2)
Quarter: 2015Q3

REPORT INFORMATION
  Report Type: Report from Study
  Country: TR (occurrence: TR)
  Receive Date: 20150702
  Receipt Date: 20150723
  Transmission Date: 20151125
  Serious: Yes (Hospitalization, Other)
  Sender: FDA-Public Use
  Company Number: PHHY2015TR070791

PATIENT
  Age: 17 Year
  Sex: Male
  Weight: 60 kg

DRUGS (3)
  1. URSOFALK [Concomitant]
     Active Substance: URSODIOL
     Indication: CHOLELITHIASIS
  2. EXJADE [Suspect]
     Active Substance: DEFERASIROX
     Indication: THALASSAEMIA BETA
     Dosage: 625 MG, QD
     Route: 048
     Dates: start: 20130729
  3. URSOFALK [Concomitant]
     Active Substance: URSODIOL
     Indication: HEPATITIS
     Dosage: 250 MG, BID
     Route: 048
     Dates: start: 20150609, end: 20150703

REACTIONS (5)
  - Cholelithiasis [Recovered/Resolved]
  - Gallbladder disorder [Unknown]
  - Hepatitis [Recovering/Resolving]
  - Hyperbilirubinaemia [Recovered/Resolved]
  - Abdominal pain [Recovering/Resolving]

NARRATIVE: CASE EVENT DATE: 20150606
